FAERS Safety Report 25463244 (Version 1)
Quarter: 2025Q2

REPORT INFORMATION
  Report Type: Spontaneous
  Country: CN (occurrence: CN)
  Receive Date: 20250620
  Receipt Date: 20250620
  Transmission Date: 20250716
  Serious: Yes (Hospitalization, Other)
  Sender: ASTELLAS
  Company Number: CN-ASTELLAS-2025-AER-032739

PATIENT
  Age: 71 Year
  Sex: Male
  Weight: 78 kg

DRUGS (5)
  1. XOSPATA [Suspect]
     Active Substance: GILTERITINIB
     Indication: Acute myeloid leukaemia
     Dosage: FROM 01-APR-2025 VA AND GILTERITINIB CHEMOTHERAPY REGIMEN WAS GIVEN
     Route: 048
     Dates: start: 20250405, end: 20250610
  2. XOSPATA [Suspect]
     Active Substance: GILTERITINIB
     Route: 048
     Dates: start: 202506
  3. AZACITIDINE [Concomitant]
     Active Substance: AZACITIDINE
     Indication: Acute myeloid leukaemia
     Route: 065
     Dates: start: 20250401, end: 20250407
  4. VENCLEXTA [Concomitant]
     Active Substance: VENETOCLAX
     Indication: Acute myeloid leukaemia
     Route: 065
     Dates: start: 20250402, end: 20250402
  5. VENCLEXTA [Concomitant]
     Active Substance: VENETOCLAX
     Route: 065
     Dates: start: 20250403, end: 20250415

REACTIONS (3)
  - Platelet count decreased [Not Recovered/Not Resolved]
  - Granulocytopenia [Not Recovered/Not Resolved]
  - Underdose [Unknown]

NARRATIVE: CASE EVENT DATE: 20250405
